FAERS Safety Report 6387905-X (Version None)
Quarter: 2009Q3

REPORT INFORMATION
  Report Type: 
  Country: None (occurrence: None)
  Receive Date: 20090930
  Receipt Date: 20090918
  Transmission Date: 20100115
  Serious: Yes (Life-Threatening)
  Sender: FDA-Public Use
  Company Number: 2009AL006131

PATIENT
  Age: 26 Year
  Sex: Female

DRUGS (3)
  1. RANITIDINE [Suspect]
     Indication: PROPHYLAXIS
     Dosage: 50 MG; UNK; IV
     Route: 042
     Dates: start: 20090806, end: 20090806
  2. FENTANYL [Concomitant]
  3. BUPIVACAINE [Concomitant]

REACTIONS (3)
  - FLUSHING [None]
  - OEDEMA [None]
  - PARAESTHESIA [None]
